FAERS Safety Report 20692843 (Version 1)
Quarter: 2022Q2

REPORT INFORMATION
  Report Type: Spontaneous
  Country: SE (occurrence: SE)
  Receive Date: 20220409
  Receipt Date: 20220409
  Transmission Date: 20220721
  Serious: Yes (Disabling)
  Sender: FDA-Public Use
  Company Number: None

PATIENT
  Age: 35 Year
  Sex: Male
  Weight: 82 kg

DRUGS (5)
  1. AJOVY [Suspect]
     Active Substance: FREMANEZUMAB-VFRM
     Indication: Migraine
     Dosage: 225 MG ONCE A MONTH
     Dates: start: 20220117
  2. BRICANYL [Concomitant]
     Active Substance: TERBUTALINE SULFATE
     Dosage: 0.5 MG / DOSE IF NECESSARY,, TURBUHALER
     Route: 055
     Dates: start: 20161003
  3. PULMICORT TURBUHALER [Concomitant]
     Active Substance: BUDESONIDE
     Dosage: 800 MICROGRAM DAILY; TURBUHALER
     Route: 055
     Dates: start: 20161003
  4. SUMATRIPTAN BLUEFISH [Concomitant]
     Dosage: 100 MG IF NEEDED
     Route: 048
     Dates: start: 20161003
  5. OXIS [Concomitant]
     Active Substance: FORMOTEROL FUMARATE
     Dosage: 9 MICROGRAM DAILY; TURBUHALER
     Route: 055
     Dates: start: 20161003

REACTIONS (1)
  - Dry mouth [Not Recovered/Not Resolved]

NARRATIVE: CASE EVENT DATE: 20220119
